FAERS Safety Report 8028262-2 (Version None)
Quarter: 2012Q1

REPORT INFORMATION
  Report Type: 
  Country: None (occurrence: None)
  Receive Date: 20120104
  Receipt Date: 20111220
  Transmission Date: 20120608
  Serious: Yes (Other)
  Sender: FDA-Public Use
  Company Number: NSR_00304_2011

PATIENT
  Sex: Female
  Weight: 104.3273 kg

DRUGS (17)
  1. INDAPAMIDE [Concomitant]
  2. CLONOPIN [Concomitant]
  3. ATENOLOL [Concomitant]
  4. CLONIDINE [Concomitant]
  5. MULTIVITAMIN W/MINERALS [Concomitant]
  6. GLIPIZIDE [Concomitant]
  7. ALLOPURINOL [Suspect]
     Indication: BLOOD URIC ACID INCREASED
     Dosage: (300 MG QD ORAL)
     Route: 048
  8. LIPITOR [Suspect]
     Indication: PRODUCT USED FOR UNKNOWN INDICATION
     Dosage: (DF), A FEW YEARS
     Dates: end: 20110929
  9. ATACAND [Concomitant]
  10. METFORMIN HCL [Concomitant]
  11. FERGON [Concomitant]
  12. PRILOSEC [Concomitant]
  13. AMLODIPINE [Concomitant]
  14. ALLOPURINOL [Concomitant]
  15. SIMVASTATIN [Concomitant]
  16. LOZOL [Concomitant]
  17. GLUCOPHAGE [Concomitant]

REACTIONS (25)
  - BLOOD GLUCOSE INCREASED [None]
  - BACTERIAL INFECTION [None]
  - GASTRITIS [None]
  - BODY TEMPERATURE DECREASED [None]
  - DIARRHOEA [None]
  - ARRHYTHMIA [None]
  - ELECTROCARDIOGRAM ABNORMAL [None]
  - VASCULITIS [None]
  - DYSPNOEA EXERTIONAL [None]
  - DEHYDRATION [None]
  - FATIGUE [None]
  - ANXIETY [None]
  - HEPATIC STEATOSIS [None]
  - STEVENS-JOHNSON SYNDROME [None]
  - DYSPNOEA [None]
  - WEIGHT DECREASED [None]
  - BLOOD PRESSURE INCREASED [None]
  - FLATULENCE [None]
  - FLUSHING [None]
  - ELECTROLYTE IMBALANCE [None]
  - GASTROENTERITIS [None]
  - ABDOMINAL DISTENSION [None]
  - IRON DEFICIENCY [None]
  - BLOOD PRESSURE SYSTOLIC INCREASED [None]
  - PALPITATIONS [None]
